FAERS Safety Report 7820166-0 (Version None)
Quarter: 2011Q4

REPORT INFORMATION
  Report Type: 
  Country: None (occurrence: None)
  Receive Date: 20111018
  Receipt Date: 20111012
  Transmission Date: 20120403
  Serious: Yes (Other)
  Sender: FDA-Public Use
  Company Number: PHHY2011US50279

PATIENT
  Sex: Male
  Weight: 103.86 kg

DRUGS (13)
  1. BACLOFEN [Concomitant]
  2. XANAX [Concomitant]
  3. BUSPAR [Concomitant]
  4. GILENYA [Suspect]
     Indication: MULTIPLE SCLEROSIS RELAPSE
     Dosage: 0.5 MG, QD
     Route: 048
     Dates: start: 20110114, end: 20110601
  5. HYDROCHLOROTHIAZIDE [Concomitant]
  6. ZANTAC [Concomitant]
  7. CLONIDINE [Concomitant]
  8. PRILOSEC [Concomitant]
  9. GILENYA [Suspect]
     Dosage: 0.5 MG, QD
     Route: 048
  10. METHADONE HCL [Concomitant]
  11. MICARDIS [Concomitant]
  12. ZOLOFT [Concomitant]
  13. DANTRIUM [Concomitant]

REACTIONS (5)
  - RASH [None]
  - ERYTHEMA [None]
  - PRURITUS [None]
  - BLISTER [None]
  - BURNING SENSATION [None]
